FAERS Safety Report 6453041-7 (Version None)
Quarter: 2009Q4

REPORT INFORMATION
  Report Type: 
  Country: None (occurrence: None)
  Receive Date: 20091124
  Receipt Date: 20090522
  Transmission Date: 20100525
  Serious: No
  Sender: FDA-Public Use
  Company Number: US-ABBOTT-09P-163-0575528-00

PATIENT
  Sex: Female
  Weight: 58.566 kg

DRUGS (5)
  1. TRICOR [Suspect]
     Indication: BLOOD CHOLESTEROL INCREASED
     Route: 048
     Dates: end: 20090123
  2. BENAZEPRIL HYDROCHLORIDE [Concomitant]
     Indication: HYPERTENSION
     Route: 048
  3. CARTIA XT [Concomitant]
     Indication: HYPERTENSION
     Route: 048
  4. LASIX [Concomitant]
     Indication: HYPERTENSION
     Route: 048
  5. LEVOTHYROXINE SODIUM [Concomitant]
     Indication: HYPOTHYROIDISM
     Route: 048

REACTIONS (2)
  - BLOOD CREATININE INCREASED [None]
  - CREATININE RENAL CLEARANCE INCREASED [None]
